FAERS Safety Report 6697393-1 (Version None)
Quarter: 2010Q2

REPORT INFORMATION
  Report Type: 
  Country: None (occurrence: None)
  Receive Date: 20100426
  Receipt Date: 20100413
  Transmission Date: 20101027
  Serious: Yes (Death, Other)
  Sender: FDA-Public Use
  Company Number: FR-WATSON-2010-05284

PATIENT
  Age: 28 Year
  Sex: Male

DRUGS (5)
  1. OXAZEPAM (WATSON LABORATORIES) [Suspect]
     Indication: DEPRESSION
     Dosage: UNK
  2. CLONAZEPAM [Suspect]
     Indication: EPILEPSY
     Dosage: UNK
  3. SALBUTAMOL [Suspect]
     Indication: DEPRESSION
     Dosage: UNK
  4. BUPRENORPHINE [Suspect]
     Indication: DEPRESSION
     Dosage: UNK
  5. CYAMEMAZINE [Suspect]
     Indication: DEPRESSION
     Dosage: UNK

REACTIONS (3)
  - ASPHYXIA [None]
  - LOSS OF CONSCIOUSNESS [None]
  - VOMITING [None]
